FAERS Safety Report 4370314-2 (Version None)
Quarter: 2004Q2

REPORT INFORMATION
  Report Type: 
  Country: None (occurrence: None)
  Receive Date: 20040603
  Receipt Date: 20040310
  Transmission Date: 20050107
  Serious: No
  Sender: FDA-Public Use
  Company Number: US-BRISTOL-MYERS SQUIBB COMPANY-12530465

PATIENT
  Age: 40 Year
  Sex: Female
  Weight: 68 kg

DRUGS (4)
  1. ABILIFY [Suspect]
     Indication: AFFECTIVE DISORDER
     Dosage: STARTED DOSING ^7-9 DAYS AGO^.
     Route: 048
     Dates: start: 20040301
  2. SEROQUEL [Concomitant]
  3. CLONAZEPAM [Concomitant]
  4. DEPO-PROVERA [Concomitant]

REACTIONS (2)
  - ASTHENIA [None]
  - DEPRESSION [None]
